FAERS Safety Report 8915081 (Version 2)
Quarter: 2012Q4

REPORT INFORMATION
  Report Type: Report from Study
  Country: US (occurrence: US)
  Receive Date: 20121119
  Receipt Date: 20121220
  Transmission Date: 20130627
  Serious: Yes (Other)
  Sender: FDA-Public Use
  Company Number: US-ABBOTT-12P-163-1007561-00

PATIENT
  Age: 63 Year
  Sex: Female
  Weight: 48.12 kg

DRUGS (6)
  1. HUMIRA PEN [Suspect]
     Indication: CROHN^S DISEASE
     Dates: start: 20120924
  2. PREDNISONE [Concomitant]
     Indication: PRODUCT USED FOR UNKNOWN INDICATION
     Dosage: 10 mg daily
  3. LASIX [Concomitant]
     Indication: OEDEMA
     Dosage: Every other day
  4. AMBIEN [Concomitant]
     Indication: INSOMNIA
     Dosage: At night
  5. PROPRANOLOL [Concomitant]
     Indication: MIGRAINE
     Dosage: Daily
  6. IMITREX [Concomitant]
     Indication: MIGRAINE

REACTIONS (5)
  - Benign small intestinal neoplasm [Not Recovered/Not Resolved]
  - Aphagia [Not Recovered/Not Resolved]
  - Asthenia [Not Recovered/Not Resolved]
  - Crohn^s disease [Not Recovered/Not Resolved]
  - Fatigue [Not Recovered/Not Resolved]
